FAERS Safety Report 5153305-3 (Version None)
Quarter: 2006Q4

REPORT INFORMATION
  Report Type: 
  Country: None (occurrence: None)
  Receive Date: 20061116
  Receipt Date: 20061116
  Transmission Date: 20070319
  Serious: No
  Sender: FDA-Public Use
  Company Number: None

PATIENT
  Sex: Female
  Weight: 81.8 kg

DRUGS (9)
  1. CARBOPLATIN [Suspect]
     Dosage: 659 MG
  2. TAXOTERE [Suspect]
     Dosage: 142 MG
  3. IBUPROFEN [Concomitant]
  4. LISINOPRIL [Concomitant]
  5. LOVENOX [Concomitant]
  6. OXYCODONE HCL [Concomitant]
  7. PAXIL [Concomitant]
  8. PROTONIX [Concomitant]
  9. SYNTHROID [Concomitant]

REACTIONS (3)
  - CATHETER RELATED COMPLICATION [None]
  - NEUTROPHIL COUNT DECREASED [None]
  - WHITE BLOOD CELL COUNT DECREASED [None]
